FAERS Safety Report 25993880 (Version 1)
Quarter: 2025Q4

REPORT INFORMATION
  Report Type: Report from Study
  Country: CA (occurrence: CA)
  Receive Date: 20251104
  Receipt Date: 20251104
  Transmission Date: 20260117
  Serious: Yes (Other)
  Sender: CELLTRION
  Company Number: CA-CELLTRION INC.-2025CA031630

PATIENT

DRUGS (3)
  1. OMALIZUMAB [Suspect]
     Active Substance: OMALIZUMAB
     Indication: Chronic spontaneous urticaria
     Dosage: 300 MG SC EVERY 4 WEEKS
     Route: 058
     Dates: start: 20250828
  2. OMALIZUMAB [Suspect]
     Active Substance: OMALIZUMAB
     Dosage: 300 MG EVERY 4 WEEKS
     Route: 058
  3. ACCUTANE [Concomitant]
     Active Substance: ISOTRETINOIN

REACTIONS (17)
  - Stress [Unknown]
  - Myalgia [Unknown]
  - Dizziness [Unknown]
  - Heart rate increased [Unknown]
  - Lymphadenopathy [Unknown]
  - Rash [Unknown]
  - Throat irritation [Unknown]
  - Dysphagia [Unknown]
  - Panic reaction [Unknown]
  - Anxiety [Unknown]
  - Body temperature increased [Unknown]
  - Growing pains [Unknown]
  - Dyspnoea [Unknown]
  - Urticaria [Unknown]
  - Abdominal pain [Unknown]
  - Arthralgia [Unknown]
  - Headache [Unknown]
